FAERS Safety Report 5920398-2 (Version None)
Quarter: 2008Q4

REPORT INFORMATION
  Report Type: 
  Country: None (occurrence: None)
  Receive Date: 20081014
  Receipt Date: 20081007
  Transmission Date: 20090506
  Serious: Yes (Other)
  Sender: FDA-Public Use
  Company Number: 2008SP013948

PATIENT
  Age: 49 Year
  Sex: Male

DRUGS (1)
  1. TEMODAL [Suspect]
     Indication: LUNG CANCER METASTATIC
     Dosage: 150 MG/M2; ; PO
     Route: 048
     Dates: start: 20080507

REACTIONS (3)
  - EMBOLISM VENOUS [None]
  - IMMOBILE [None]
  - PERIPHERAL ISCHAEMIA [None]
